FAERS Safety Report 9025341 (Version 1)
Quarter: 2012Q4

REPORT INFORMATION
  Report Type: 
  Country: MX (occurrence: MX)
  Receive Date: 20121211
  Receipt Date: 20121211
  Transmission Date: 20130627
  Serious: Yes (Other)
  Sender: FDA-Public Use
  Company Number: PHHY2012MX113186

PATIENT
  Age: 21 Year
  Sex: Male

DRUGS (2)
  1. TASIGNA [Suspect]
     Indication: CHRONIC MYELOID LEUKAEMIA
     Dosage: 400 mg, BID
  2. TASIGNA [Suspect]
     Dosage: 200 mg, BID

REACTIONS (4)
  - Onychomadesis [Unknown]
  - Drug intolerance [Unknown]
  - Chloasma [Unknown]
  - Rash [Unknown]
